FAERS Safety Report 6945997-0 (Version None)
Quarter: 2010Q3

REPORT INFORMATION
  Report Type: 
  Country: None (occurrence: None)
  Receive Date: 20100827
  Receipt Date: 20100215
  Transmission Date: 20110219
  Serious: No
  Sender: FDA-Public Use
  Company Number: A0844521A

PATIENT
  Age: 34 Year
  Sex: Female

DRUGS (5)
  1. ZOVIRAX [Suspect]
     Indication: GENITAL HERPES
     Dosage: 400MG TWICE PER DAY
     Route: 048
     Dates: start: 20080901
  2. EFFEXOR [Concomitant]
  3. IBUPROFEN [Concomitant]
  4. GLUCOPHAGE XR [Concomitant]
  5. PRENATAL VITAMINS [Concomitant]

REACTIONS (1)
  - HERPES VIRUS INFECTION [None]
